FAERS Safety Report 20049102 (Version 1)
Quarter: 2021Q4

REPORT INFORMATION
  Report Type: Spontaneous
  Country: US (occurrence: None)
  Receive Date: 20211109
  Receipt Date: 20211109
  Transmission Date: 20220303
  Serious: Yes (Other)
  Sender: FDA-Public Use
  Company Number: None

PATIENT
  Age: 40 Year
  Sex: Female
  Weight: 60.75 kg

DRUGS (1)
  1. METHYLPHENIDATE HYDROCHLORIDE [Suspect]
     Active Substance: METHYLPHENIDATE HYDROCHLORIDE
     Indication: Attention deficit hyperactivity disorder
     Dosage: OTHER QUANTITY : 30 TABLET(S);?
     Route: 048
     Dates: start: 20211014, end: 20211107

REACTIONS (21)
  - Bowel movement irregularity [None]
  - Abdominal pain upper [None]
  - Abdominal distension [None]
  - Flatulence [None]
  - Anal incontinence [None]
  - Gastrointestinal hypomotility [None]
  - Headache [None]
  - Palpitations [None]
  - Chest pain [None]
  - Renal pain [None]
  - Back pain [None]
  - Nausea [None]
  - Chills [None]
  - Vision blurred [None]
  - Visual impairment [None]
  - Abdominal pain upper [None]
  - Dehydration [None]
  - Asthenia [None]
  - Confusional state [None]
  - Product quality issue [None]
  - Drug intolerance [None]

NARRATIVE: CASE EVENT DATE: 20211016
